FAERS Safety Report 7340680-4 (Version None)
Quarter: 2011Q1

REPORT INFORMATION
  Report Type: 
  Country: None (occurrence: None)
  Receive Date: 20110301
  Receipt Date: 20110214
  Transmission Date: 20110831
  Serious: Yes (Other)
  Sender: FDA-Public Use
  Company Number: MC201100060

PATIENT
  Age: 63 Year
  Sex: Male
  Weight: 106 kg

DRUGS (3)
  1. ANGIOMAX [Suspect]
     Indication: PERCUTANEOUS CORONARY INTERVENTION
     Dosage: 15 ML, BOLUS, 33 ML, HR, INTERAVENOUS
     Route: 042
     Dates: start: 20110213, end: 20110213
  2. ANGIOMAX [Suspect]
     Indication: PERCUTANEOUS CORONARY INTERVENTION
     Dosage: 15 ML, BOLUS, 33 ML, HR, INTERAVENOUS
     Route: 042
     Dates: start: 20110213
  3. LOVENOX [Concomitant]

REACTIONS (4)
  - UNDERDOSE [None]
  - INFUSION SITE EXTRAVASATION [None]
  - THROMBOSIS IN DEVICE [None]
  - EMBOLISM ARTERIAL [None]
